FAERS Safety Report 25930767 (Version 1)
Quarter: 2025Q4

REPORT INFORMATION
  Report Type: Spontaneous
  Country: US (occurrence: US)
  Receive Date: 20251016
  Receipt Date: 20251016
  Transmission Date: 20260118
  Serious: No
  Sender: MERZ
  Company Number: US-Merz Pharmaceuticals GmbH-2025090000121

PATIENT

DRUGS (3)
  1. XEOMIN [Suspect]
     Active Substance: INCOBOTULINUMTOXINA
     Indication: Product used for unknown indication
     Dates: start: 202401, end: 202401
  2. XEOMIN [Suspect]
     Active Substance: INCOBOTULINUMTOXINA
  3. XEOMIN [Suspect]
     Active Substance: INCOBOTULINUMTOXINA
     Dates: start: 20250113, end: 20250113

REACTIONS (2)
  - Maternal exposure during pregnancy [Unknown]
  - Product dose omission issue [Unknown]

NARRATIVE: CASE EVENT DATE: 20240101
